FAERS Safety Report 19479092 (Version 4)
Quarter: 2021Q3

REPORT INFORMATION
  Report Type: Spontaneous
  Country: ES (occurrence: ES)
  Receive Date: 20210630
  Receipt Date: 20210914
  Transmission Date: 20211014
  Serious: Yes (Other)
  Sender: FDA-Public Use
  Company Number: ES-AMGEN-ESPSP2021096823

PATIENT

DRUGS (3)
  1. VITAMIN D [COLECALCIFEROL] [Concomitant]
     Active Substance: CHOLECALCIFEROL
  2. PROLIA [Suspect]
     Active Substance: DENOSUMAB
     Indication: OSTEOPOROSIS
     Dosage: UNK
     Route: 065
  3. CALCIUM [Concomitant]
     Active Substance: CALCIUM

REACTIONS (10)
  - Spinal fracture [Unknown]
  - Fracture [Unknown]
  - Myalgia [Unknown]
  - Oral surgery [Unknown]
  - Rebound effect [Unknown]
  - Intentional product misuse [Unknown]
  - Cataract [Unknown]
  - Fatigue [Unknown]
  - Unevaluable event [Unknown]
  - Hip fracture [Unknown]
